FAERS Safety Report 7053414-8 (Version None)
Quarter: 2010Q4

REPORT INFORMATION
  Report Type: 
  Country: None (occurrence: None)
  Receive Date: 20101020
  Receipt Date: 20101018
  Transmission Date: 20110411
  Serious: Yes (Other)
  Sender: FDA-Public Use
  Company Number: PHFR2010GB02777

PATIENT
  Age: 36 Year
  Sex: Female

DRUGS (2)
  1. TERBINAFINE HCL [Suspect]
     Indication: ONYCHOMYCOSIS
     Dosage: 250 MG, QD
     Route: 048
     Dates: start: 20100629, end: 20100701
  2. DEPO-PROVERA [Interacting]
     Indication: CONTRACEPTION
     Dosage: 150 MG, Q3MO
     Route: 030
     Dates: start: 20090301

REACTIONS (2)
  - DRUG INTERACTION [None]
  - METRORRHAGIA [None]
